FAERS Safety Report 9777565 (Version 2)
Quarter: 2014Q2

REPORT INFORMATION
  Report Type: Spontaneous
  Country: GB (occurrence: GB)
  Receive Date: 20131222
  Receipt Date: 20140409
  Transmission Date: 20141212
  Serious: Yes (Other)
  Sender: FDA-Public Use
  Company Number: GB-TEVA-451171ISR

PATIENT
  Age: 38 Year
  Sex: Female

DRUGS (3)
  1. CISPLATIN [Suspect]
     Indication: CERVIX CARCINOMA
     Dosage: 6 CYCLES
     Dates: start: 20131104
  2. ZAPONEX [Suspect]
     Route: 048
     Dates: start: 20090626
  3. FILGRASTIM [Concomitant]

REACTIONS (6)
  - Cervix carcinoma stage IV [Not Recovered/Not Resolved]
  - Off label use [Not Recovered/Not Resolved]
  - Neutrophil count increased [Not Recovered/Not Resolved]
  - White blood cell count increased [Not Recovered/Not Resolved]
  - Platelet count increased [Recovered/Resolved]
  - White blood cell count decreased [Recovered/Resolved]
